FAERS Safety Report 8539575-X (Version None)
Quarter: 2012Q3

REPORT INFORMATION
  Report Type: 
  Country: None (occurrence: None)
  Receive Date: 20120726
  Receipt Date: 20120713
  Transmission Date: 20120928
  Serious: Yes (Other)
  Sender: FDA-Public Use
  Company Number: DE-ELI_LILLY_AND_COMPANY-DE201207004032

PATIENT
  Age: 54 Year
  Sex: Female

DRUGS (3)
  1. HYDROCHLOROTHIAZIDE [Concomitant]
  2. CELEBREX [Concomitant]
  3. DULOXETINE HYDROCHLORIDE [Suspect]
     Indication: INCONTINENCE
     Dosage: 40 MG, UNK
     Route: 048
     Dates: start: 20120601

REACTIONS (1)
  - ANGINA PECTORIS [None]
